FAERS Safety Report 8657510 (Version 2)
Quarter: 2012Q4

REPORT INFORMATION
  Report Type: 
  Country: GB (occurrence: GB)
  Receive Date: 20120710
  Receipt Date: 20120926
  Transmission Date: 20130627
  Serious: Yes (Hospitalization, Other)
  Sender: FDA-Public Use
  Company Number: PHFR2012GB003877

PATIENT
  Sex: Female

DRUGS (3)
  1. ZOMETA [Suspect]
     Indication: METASTASES TO BONE
     Dosage: 4 mg, daily
     Route: 042
     Dates: start: 200508, end: 201112
  2. HERCEPTIN [Concomitant]
     Indication: BREAST CANCER
     Dosage: 6 mg/kg, daily
     Route: 042
     Dates: start: 200508
  3. ANASTROZOLE [Concomitant]
     Indication: BREAST CANCER
     Dosage: 1 mg, daily
     Route: 048
     Dates: start: 200508

REACTIONS (2)
  - Femur fracture [Recovering/Resolving]
  - Pathological fracture [None]
